FAERS Safety Report 9636294 (Version 3)
Quarter: 2013Q4

REPORT INFORMATION
  Report Type: Report from Study
  Country: CA (occurrence: CA)
  Receive Date: 20131021
  Receipt Date: 20131126
  Transmission Date: 20140711
  Serious: Yes (Other)
  Sender: FDA-Public Use
  Company Number: CA-ROCHE-1137389

PATIENT
  Age: 56 Year
  Sex: Female
  Weight: 62 kg

DRUGS (22)
  1. RITUXAN [Suspect]
     Indication: LUPUS NEPHRITIS
     Dosage: DAY 1 AND 15
     Route: 042
     Dates: start: 20120620
  2. RITUXAN [Suspect]
     Indication: CRYOGLOBULINAEMIA
     Dosage: DAY 1
     Route: 042
     Dates: start: 20130710
  3. RITUXAN [Suspect]
     Indication: OFF LABEL USE
  4. RITUXAN [Suspect]
     Indication: SJOGREN^S SYNDROME
  5. RITUXAN [Suspect]
     Indication: VASCULITIS
  6. CELLCEPT [Suspect]
     Indication: PRODUCT USED FOR UNKNOWN INDICATION
     Route: 048
     Dates: end: 2013
  7. ACTONEL [Suspect]
     Indication: PRODUCT USED FOR UNKNOWN INDICATION
     Route: 065
     Dates: end: 2013
  8. PREDNISONE [Suspect]
     Indication: PRODUCT USED FOR UNKNOWN INDICATION
     Route: 065
     Dates: end: 2013
  9. SULFAMETHOXAZOL [Suspect]
     Indication: PRODUCT USED FOR UNKNOWN INDICATION
     Route: 065
  10. COZAAR [Suspect]
     Indication: HYPERTENSION
     Route: 048
     Dates: end: 2013
  11. RAMIPRIL [Suspect]
     Indication: HYPERTENSION
     Route: 048
  12. RAMIPRIL [Suspect]
     Route: 048
  13. ARANESP [Concomitant]
     Route: 065
  14. TRAMADOL [Concomitant]
  15. TRAMACET [Concomitant]
  16. ZOPICLONE [Concomitant]
  17. VITAMIN B12 [Concomitant]
  18. OMEGA 3 [Concomitant]
  19. DIPHENHYDRAMINE HCL [Concomitant]
     Indication: PREMEDICATION
     Route: 048
  20. ACETAMINOPHEN [Concomitant]
     Indication: PREMEDICATION
     Route: 048
     Dates: end: 20120620
  21. METHYLPREDNISOLONE [Concomitant]
     Indication: PREMEDICATION
     Route: 042
     Dates: end: 20120620
  22. TRIMETHOPRIM [Concomitant]

REACTIONS (10)
  - Palpitations [Not Recovered/Not Resolved]
  - Drug ineffective [Unknown]
  - Hypotension [Unknown]
  - Headache [Not Recovered/Not Resolved]
  - Vomiting [Not Recovered/Not Resolved]
  - Abdominal pain upper [Unknown]
  - Lupus nephritis [Not Recovered/Not Resolved]
  - Insomnia [Unknown]
  - Laboratory test abnormal [Not Recovered/Not Resolved]
  - Malaise [Unknown]
